FAERS Safety Report 5471309-8 (Version None)
Quarter: 2007Q3

REPORT INFORMATION
  Report Type: 
  Country: None (occurrence: None)
  Receive Date: 20070928
  Receipt Date: 20070913
  Transmission Date: 20080115
  Serious: Yes (Hospitalization, Other)
  Sender: FDA-Public Use
  Company Number: US-AMGEN-US243260

PATIENT
  Sex: Male

DRUGS (3)
  1. NEULASTA [Suspect]
     Indication: DRUG USE FOR UNKNOWN INDICATION
     Route: 065
     Dates: start: 20070701, end: 20070801
  2. INTERFERON [Concomitant]
     Route: 065
  3. PROCRIT [Concomitant]
     Route: 065

REACTIONS (5)
  - COAGULOPATHY [None]
  - GASTRITIS [None]
  - HAEMATEMESIS [None]
  - HAEMORRHAGE [None]
  - PLATELET COUNT DECREASED [None]
